FAERS Safety Report 25972833 (Version 2)
Quarter: 2025Q4

REPORT INFORMATION
  Report Type: Report from Study
  Country: JP (occurrence: JP)
  Receive Date: 20251029
  Receipt Date: 20251222
  Transmission Date: 20260118
  Serious: Yes (Death)
  Sender: RECORDATI
  Company Number: JP-RECORDATI RARE DISEASE INC.-2025007580

PATIENT
  Age: 72 Year
  Sex: Male
  Weight: 57 kg

DRUGS (53)
  1. ENJAYMO [Suspect]
     Active Substance: SUTIMLIMAB-JOME
     Indication: Cold type haemolytic anaemia
     Dosage: 6.5 GRAM, TOTAL
     Route: 041
     Dates: start: 20230111
  2. ENJAYMO [Suspect]
     Active Substance: SUTIMLIMAB-JOME
     Dosage: 6.5 GRAM, TOTAL
     Route: 041
     Dates: start: 20230117
  3. ENJAYMO [Suspect]
     Active Substance: SUTIMLIMAB-JOME
     Dosage: 6.5 GRAM, TOTAL
     Route: 041
     Dates: start: 20230131
  4. ENJAYMO [Suspect]
     Active Substance: SUTIMLIMAB-JOME
     Dosage: 6.5 GRAM, TOTAL
     Route: 041
     Dates: start: 20230215
  5. ENJAYMO [Suspect]
     Active Substance: SUTIMLIMAB-JOME
     Dosage: 6.5 GRAM, TOTAL
     Route: 041
     Dates: start: 20230307
  6. ENJAYMO [Suspect]
     Active Substance: SUTIMLIMAB-JOME
     Dosage: 6.5 GRAM, TOTAL
     Route: 041
     Dates: start: 20230323
  7. ENJAYMO [Suspect]
     Active Substance: SUTIMLIMAB-JOME
     Dosage: 6.5 GRAM, TOTAL
     Route: 041
     Dates: start: 20230406
  8. ENJAYMO [Suspect]
     Active Substance: SUTIMLIMAB-JOME
     Dosage: 6.5 GRAM, TOTAL
     Route: 041
     Dates: start: 20230420
  9. ENJAYMO [Suspect]
     Active Substance: SUTIMLIMAB-JOME
     Dosage: 6.5 GRAM, TOTAL
     Route: 041
     Dates: start: 20230509
  10. ENJAYMO [Suspect]
     Active Substance: SUTIMLIMAB-JOME
     Dosage: 6.5 GRAM, TOTAL
     Route: 041
     Dates: start: 20230523
  11. ENJAYMO [Suspect]
     Active Substance: SUTIMLIMAB-JOME
     Dosage: 6.5 GRAM, TOTAL
     Route: 041
     Dates: start: 20230606
  12. ENJAYMO [Suspect]
     Active Substance: SUTIMLIMAB-JOME
     Dosage: 6.5 GRAM, TOTAL
     Route: 041
     Dates: start: 20230620
  13. ENJAYMO [Suspect]
     Active Substance: SUTIMLIMAB-JOME
     Dosage: 6.5 GRAM, TOTAL
     Route: 041
     Dates: start: 20230704
  14. ENJAYMO [Suspect]
     Active Substance: SUTIMLIMAB-JOME
     Dosage: 6.5 GRAM, TOTAL
     Route: 041
     Dates: start: 20230718
  15. ENJAYMO [Suspect]
     Active Substance: SUTIMLIMAB-JOME
     Dosage: 6.5 GRAM, TOTAL
     Route: 041
     Dates: start: 20230801
  16. ENJAYMO [Suspect]
     Active Substance: SUTIMLIMAB-JOME
     Dosage: 6.5 GRAM, TOTAL
     Route: 041
     Dates: start: 20230815
  17. ENJAYMO [Suspect]
     Active Substance: SUTIMLIMAB-JOME
     Dosage: 6.5 GRAM, TOTAL
     Route: 041
     Dates: start: 20230829
  18. ENJAYMO [Suspect]
     Active Substance: SUTIMLIMAB-JOME
     Dosage: 6.5 GRAM, TOTAL
     Route: 041
     Dates: start: 20230912
  19. ENJAYMO [Suspect]
     Active Substance: SUTIMLIMAB-JOME
     Dosage: 6.5 GRAM, TOTAL
     Route: 041
     Dates: start: 20230926
  20. ENJAYMO [Suspect]
     Active Substance: SUTIMLIMAB-JOME
     Dosage: 6.5 GRAM, TOTAL
     Route: 041
     Dates: start: 20231010
  21. ENJAYMO [Suspect]
     Active Substance: SUTIMLIMAB-JOME
     Dosage: 6.5 GRAM, TOTAL
     Route: 041
     Dates: start: 20231024
  22. ENJAYMO [Suspect]
     Active Substance: SUTIMLIMAB-JOME
     Dosage: 6.5 GRAM, TOTAL
     Route: 041
     Dates: start: 20231107
  23. ENJAYMO [Suspect]
     Active Substance: SUTIMLIMAB-JOME
     Dosage: 6.5 GRAM, TOTAL
     Route: 041
     Dates: start: 20231121
  24. ENJAYMO [Suspect]
     Active Substance: SUTIMLIMAB-JOME
     Dosage: 6.5 GRAM, TOTAL
     Route: 041
     Dates: start: 20231207
  25. ENJAYMO [Suspect]
     Active Substance: SUTIMLIMAB-JOME
     Dosage: 6.5 GRAM, TOTAL
     Route: 041
     Dates: start: 20231221
  26. ENJAYMO [Suspect]
     Active Substance: SUTIMLIMAB-JOME
     Dosage: 6.5 GRAM, TOTAL
     Route: 041
     Dates: start: 20240109
  27. ENJAYMO [Suspect]
     Active Substance: SUTIMLIMAB-JOME
     Dosage: 6.5 GRAM, TOTAL
     Route: 041
     Dates: start: 20240123
  28. ENJAYMO [Suspect]
     Active Substance: SUTIMLIMAB-JOME
     Dosage: 6.5 GRAM, TOTAL
     Route: 041
     Dates: start: 20240206
  29. ENJAYMO [Suspect]
     Active Substance: SUTIMLIMAB-JOME
     Dosage: 6.5 GRAM, TOTAL
     Route: 041
     Dates: start: 20240220
  30. ENJAYMO [Suspect]
     Active Substance: SUTIMLIMAB-JOME
     Dosage: 6.5 GRAM, TOTAL
     Route: 041
     Dates: start: 20240305
  31. ENJAYMO [Suspect]
     Active Substance: SUTIMLIMAB-JOME
     Dosage: 6.5 GRAM, TOTAL
     Route: 041
     Dates: start: 20240319
  32. ENJAYMO [Suspect]
     Active Substance: SUTIMLIMAB-JOME
     Dosage: 6.5 GRAM, TOTAL
     Route: 041
     Dates: start: 20240402
  33. ENJAYMO [Suspect]
     Active Substance: SUTIMLIMAB-JOME
     Dosage: 6.5 GRAM, TOTAL
     Route: 041
     Dates: start: 20240416
  34. ENJAYMO [Suspect]
     Active Substance: SUTIMLIMAB-JOME
     Dosage: 6.5 GRAM, TOTAL
     Route: 041
     Dates: start: 20240430
  35. ENJAYMO [Suspect]
     Active Substance: SUTIMLIMAB-JOME
     Dosage: 6.5 GRAM, TOTAL
     Route: 041
     Dates: start: 20240514
  36. ENJAYMO [Suspect]
     Active Substance: SUTIMLIMAB-JOME
     Dosage: 6.5 GRAM, TOTAL
     Route: 041
     Dates: start: 20240528
  37. ENJAYMO [Suspect]
     Active Substance: SUTIMLIMAB-JOME
     Dosage: 6.5 GRAM, TOTAL
     Route: 041
     Dates: start: 20240611
  38. ENJAYMO [Suspect]
     Active Substance: SUTIMLIMAB-JOME
     Dosage: 6.5 GRAM, TOTAL
     Route: 041
     Dates: start: 20240625
  39. ENJAYMO [Suspect]
     Active Substance: SUTIMLIMAB-JOME
     Dosage: 6.5 GRAM, TOTAL
     Route: 041
     Dates: start: 20240709
  40. ENJAYMO [Suspect]
     Active Substance: SUTIMLIMAB-JOME
     Dosage: 6.5 GRAM, TOTAL
     Route: 041
     Dates: start: 20240723
  41. ENJAYMO [Suspect]
     Active Substance: SUTIMLIMAB-JOME
     Dosage: 6.5 GRAM, TOTAL
     Route: 041
     Dates: start: 20240806
  42. ENJAYMO [Suspect]
     Active Substance: SUTIMLIMAB-JOME
     Dosage: 6.5 GRAM, TOTAL
     Route: 041
     Dates: start: 20240820
  43. ENJAYMO [Suspect]
     Active Substance: SUTIMLIMAB-JOME
     Dosage: 6.5 GRAM, TOTAL
     Route: 041
     Dates: start: 20240903
  44. ENJAYMO [Suspect]
     Active Substance: SUTIMLIMAB-JOME
     Dosage: 6.5 GRAM, TOTAL
     Route: 041
     Dates: start: 20240917
  45. ENJAYMO [Suspect]
     Active Substance: SUTIMLIMAB-JOME
     Dosage: 6.5 GRAM, TOTAL
     Route: 041
     Dates: start: 20241001
  46. ENJAYMO [Suspect]
     Active Substance: SUTIMLIMAB-JOME
     Dosage: 6.5 GRAM, TOTAL
     Route: 041
     Dates: start: 20241015
  47. ENJAYMO [Suspect]
     Active Substance: SUTIMLIMAB-JOME
     Dosage: 6.5 GRAM, TOTAL
     Route: 041
     Dates: start: 20241029
  48. ENJAYMO [Suspect]
     Active Substance: SUTIMLIMAB-JOME
     Dosage: 6.5 GRAM, TOTAL
     Route: 041
     Dates: start: 20241112
  49. ENJAYMO [Suspect]
     Active Substance: SUTIMLIMAB-JOME
     Dosage: 6.5 GRAM, TOTAL
     Route: 041
     Dates: start: 20241126
  50. ENJAYMO [Suspect]
     Active Substance: SUTIMLIMAB-JOME
     Dosage: 6.5 GRAM, TOTAL
     Route: 041
     Dates: start: 20241210, end: 20250213
  51. OLMESARTAN [Concomitant]
     Active Substance: OLMESARTAN
     Indication: Disease complication
     Dosage: UNK
  52. IPRAGLIFLOZIN L-PROLINE [Concomitant]
     Active Substance: IPRAGLIFLOZIN L-PROLINE
     Indication: Disease complication
     Dosage: UNK
  53. ROSUVASTATIN [Concomitant]
     Active Substance: ROSUVASTATIN
     Indication: Disease complication
     Dosage: UNK

REACTIONS (2)
  - Malignant neoplasm of unknown primary site [Fatal]
  - Off label use [Recovered/Resolved]

NARRATIVE: CASE EVENT DATE: 20230117
